FAERS Safety Report 25840844 (Version 1)
Quarter: 2025Q3

REPORT INFORMATION
  Report Type: Spontaneous
  Country: US (occurrence: US)
  Receive Date: 20250924
  Receipt Date: 20250924
  Transmission Date: 20251021
  Serious: Yes (Life-Threatening, Hospitalization)
  Sender: MYLAN
  Company Number: US-MYLANLABS-2025M1080469

PATIENT
  Age: 82 Year
  Sex: Female

DRUGS (16)
  1. ACETAMINOPHEN [Suspect]
     Active Substance: ACETAMINOPHEN
     Indication: Anaphylaxis prophylaxis
  2. ACETAMINOPHEN [Suspect]
     Active Substance: ACETAMINOPHEN
     Route: 065
  3. ACETAMINOPHEN [Suspect]
     Active Substance: ACETAMINOPHEN
     Route: 065
  4. ACETAMINOPHEN [Suspect]
     Active Substance: ACETAMINOPHEN
  5. MONTELUKAST [Suspect]
     Active Substance: MONTELUKAST
     Indication: Anaphylaxis prophylaxis
  6. MONTELUKAST [Suspect]
     Active Substance: MONTELUKAST
     Route: 065
  7. MONTELUKAST [Suspect]
     Active Substance: MONTELUKAST
     Route: 065
  8. MONTELUKAST [Suspect]
     Active Substance: MONTELUKAST
  9. OMALIZUMAB [Suspect]
     Active Substance: OMALIZUMAB
     Indication: Anaphylaxis prophylaxis
  10. OMALIZUMAB [Suspect]
     Active Substance: OMALIZUMAB
     Route: 065
  11. OMALIZUMAB [Suspect]
     Active Substance: OMALIZUMAB
     Route: 065
  12. OMALIZUMAB [Suspect]
     Active Substance: OMALIZUMAB
  13. CARBOPLATIN [Concomitant]
     Active Substance: CARBOPLATIN
     Indication: Ovarian cancer metastatic
  14. CARBOPLATIN [Concomitant]
     Active Substance: CARBOPLATIN
     Route: 042
  15. CARBOPLATIN [Concomitant]
     Active Substance: CARBOPLATIN
     Route: 042
  16. CARBOPLATIN [Concomitant]
     Active Substance: CARBOPLATIN

REACTIONS (2)
  - Drug ineffective [Unknown]
  - Off label use [Unknown]
